FAERS Safety Report 11030316 (Version 2)
Quarter: 2015Q2

REPORT INFORMATION
  Report Type: Spontaneous
  Country: AU (occurrence: AU)
  Receive Date: 20150415
  Receipt Date: 20150427
  Transmission Date: 20150821
  Serious: Yes (Other)
  Sender: FDA-Public Use
  Company Number: AU-JNJFOC-20150321843

PATIENT
  Sex: Female

DRUGS (3)
  1. OLYSIO [Suspect]
     Active Substance: SIMEPREVIR
     Indication: CHRONIC HEPATITIS C
     Route: 048
  2. PEGYLATED INTERFERON NOS [Suspect]
     Active Substance: PEGINTERFERON ALFA-2A OR PEGINTERFERON ALFA-2B OR PEGINTERFERON BETA-1A OR PEGINTERFERON LAMBDA-1A
     Indication: CHRONIC HEPATITIS C
     Route: 065
  3. RIBAVIRIN. [Suspect]
     Active Substance: RIBAVIRIN
     Indication: CHRONIC HEPATITIS C
     Route: 065

REACTIONS (11)
  - Prothrombin time prolonged [Not Recovered/Not Resolved]
  - Blood bilirubin increased [Unknown]
  - Seizure [Unknown]
  - Syncope [Unknown]
  - Blood albumin increased [Not Recovered/Not Resolved]
  - Hepatic failure [Unknown]
  - Hypotension [Unknown]
  - Vomiting [Unknown]
  - Rash vesicular [Unknown]
  - Jaundice [Unknown]
  - International normalised ratio [Not Recovered/Not Resolved]
